FAERS Safety Report 10617749 (Version 1)
Quarter: 2014Q4

REPORT INFORMATION
  Report Type: Spontaneous
  Country: US (occurrence: US)
  Receive Date: 20141201
  Receipt Date: 20141201
  Transmission Date: 20150529
  Serious: No
  Sender: FDA-Public Use
  Company Number: US-GILEAD-2014-0124070

PATIENT
  Age: 88 Year

DRUGS (2)
  1. LAN [Concomitant]
  2. RANEXA [Suspect]
     Active Substance: RANOLAZINE
     Indication: UNEVALUABLE EVENT
     Dosage: 500 MG, BID
     Route: 065

REACTIONS (2)
  - Fall [Unknown]
  - Dizziness [Unknown]
